FAERS Safety Report 17985549 (Version 4)
Quarter: 2022Q4

REPORT INFORMATION
  Report Type: Report from Study
  Country: GB (occurrence: GB)
  Receive Date: 20200706
  Receipt Date: 20221017
  Transmission Date: 20230113
  Serious: Yes (Hospitalization, Other)
  Sender: FDA-Public Use
  Company Number: NVSC2020GB188436

PATIENT
  Sex: Male

DRUGS (3)
  1. OMNITROPE [Suspect]
     Active Substance: SOMATROPIN
     Indication: Growth hormone deficiency
     Dosage: 0.3 MG, QD
     Route: 058
     Dates: start: 20200701
  2. OMNITROPE [Suspect]
     Active Substance: SOMATROPIN
     Indication: Blood glucose abnormal
     Dosage: 0.5 MG, BID (0.3 MG IN NIGHT AND 0.2 MG IN MORNING)
     Route: 058
  3. OMNITROPE [Suspect]
     Active Substance: SOMATROPIN
     Dosage: 0.4 MG, BID
     Route: 058

REACTIONS (6)
  - Seizure [Unknown]
  - Hypoglycaemia [Unknown]
  - Nasopharyngitis [Unknown]
  - Liver disorder [Unknown]
  - Product supply issue [Unknown]
  - Product dose omission issue [Not Recovered/Not Resolved]
